FAERS Safety Report 12444235 (Version 2)
Quarter: 2018Q2

REPORT INFORMATION
  Report Type: Spontaneous
  Country: US (occurrence: US)
  Receive Date: 20160607
  Receipt Date: 20180515
  Transmission Date: 20180711
  Serious: No
  Sender: FDA-Public Use
  Company Number: US-SA-2016SA088997

PATIENT
  Age: 70 Year
  Sex: Male

DRUGS (4)
  1. TOUJEO [Suspect]
     Active Substance: INSULIN GLARGINE
     Indication: TYPE 2 DIABETES MELLITUS
     Dosage: DOSE: 95-100 UNITS
     Route: 065
     Dates: start: 201604
  2. SOLOSTAR [Concomitant]
     Active Substance: DEVICE
     Dates: start: 201604
  3. LANTUS [Concomitant]
     Active Substance: INSULIN GLARGINE
     Dosage: 80-90 UNITS PER DAY
  4. METFORMIN [Concomitant]
     Active Substance: METFORMIN HYDROCHLORIDE

REACTIONS (2)
  - Drug ineffective [Unknown]
  - Blood glucose increased [Unknown]
